FAERS Safety Report 20434633 (Version 1)
Quarter: 2022Q1

REPORT INFORMATION
  Report Type: Report from Study
  Country: US (occurrence: US)
  Receive Date: 20220206
  Receipt Date: 20220206
  Transmission Date: 20220423
  Serious: No
  Sender: FDA-Public Use
  Company Number: US-NOVARTISTESTPH-NVSC2022US024213

PATIENT
  Age: 64 Year
  Sex: Male
  Weight: 83.91 kg

DRUGS (1)
  1. ENTRESTO [Suspect]
     Active Substance: SACUBITRIL\VALSARTAN
     Indication: Cardiomegaly
     Dosage: 49.51 MG, ONCE2SDO
     Route: 048
     Dates: start: 202104

REACTIONS (7)
  - COVID-19 [Unknown]
  - Asthenia [Unknown]
  - Rhinorrhoea [Unknown]
  - Cough [Unknown]
  - Influenza [Unknown]
  - Amnesia [Unknown]
  - Abdominal discomfort [Unknown]

NARRATIVE: CASE EVENT DATE: 20211201
